FAERS Safety Report 18534148 (Version 5)
Quarter: 2024Q4

REPORT INFORMATION
  Report Type: Report from Study
  Country: US (occurrence: US)
  Receive Date: 20201123
  Receipt Date: 20241216
  Transmission Date: 20250115
  Serious: Yes (Other)
  Sender: MYLAN
  Company Number: US-PFIZER INC-2020443927

PATIENT
  Sex: Male
  Weight: 136.08 kg

DRUGS (2)
  1. PHENYTOIN [Suspect]
     Active Substance: PHENYTOIN
     Indication: Epilepsy
     Dosage: UNK
     Route: 065
  2. DILANTIN [Suspect]
     Active Substance: PHENYTOIN
     Indication: Epilepsy
     Dosage: 300 MILLIGRAM, BID, TAKE 3 CAPSULES TWICE A DAY
     Route: 065

REACTIONS (2)
  - Seizure [Unknown]
  - Product substitution issue [Unknown]
